FAERS Safety Report 9312534 (Version 2)
Quarter: 2013Q2

REPORT INFORMATION
  Report Type: Spontaneous
  Country: DE (occurrence: DE)
  Receive Date: 20130528
  Receipt Date: 20130614
  Transmission Date: 20140414
  Serious: Yes (Hospitalization, Other)
  Sender: FDA-Public Use
  Company Number: DE-TEVA-407325ISR

PATIENT
  Age: 50 Year
  Sex: Female
  Weight: 52 kg

DRUGS (2)
  1. CARBOPLATIN [Suspect]
     Indication: OVARIAN CANCER
     Dosage: 525.365 MILLIGRAM DAILY;
     Route: 042
     Dates: start: 20130506
  2. PACLITAXEL [Suspect]
     Indication: OVARIAN CANCER
     Dosage: 264.6 MILLIGRAM DAILY;
     Route: 042
     Dates: start: 20130506

REACTIONS (1)
  - Abdominal pain [Not Recovered/Not Resolved]
